FAERS Safety Report 4867936-9 (Version None)
Quarter: 2005Q4

REPORT INFORMATION
  Report Type: 
  Country: None (occurrence: None)
  Receive Date: 20051227
  Receipt Date: 20051219
  Transmission Date: 20060501
  Serious: Yes (Hospitalization)
  Sender: FDA-Public Use
  Company Number: TAP2005Q02241

PATIENT
  Age: 86 Year
  Sex: Male

DRUGS (14)
  1. LUPRON DEPOT-4 [Suspect]
     Indication: PROSTATE CANCER
     Dosage: 30 MG, 1 IN 4 M, INTRAMUSCULAR
     Route: 030
     Dates: start: 20050831
  2. ADALAT [Concomitant]
  3. NOVASEN (ACETYLSALICYLIC ACID) [Concomitant]
  4. ATIVAN [Concomitant]
  5. GEN LOVASTATIN (LOVASTATIN) [Concomitant]
  6. VASOTEC [Concomitant]
  7. APO K (POTASSIUM) [Concomitant]
  8. FERROUS SULFATE TAB [Concomitant]
  9. APO LISINOPRIL (LISINOPRIL) [Concomitant]
  10. NOVO-DOCUSATE (DOCUSATE SODIUM) [Concomitant]
  11. APO OMEPRAZOLE (OMEPRAZOLE) [Concomitant]
  12. RAMIPRIL [Concomitant]
  13. CARBOCAL (LEKOVIT CA) [Concomitant]
  14. NITRO PATCH (GLYCERYL TRINITRATE) [Concomitant]

REACTIONS (3)
  - COMA [None]
  - METASTASES TO BONE [None]
  - METASTASES TO LUNG [None]
